FAERS Safety Report 5429215-0 (Version None)
Quarter: 2007Q3

REPORT INFORMATION
  Report Type: 
  Country: None (occurrence: None)
  Receive Date: 20070827
  Receipt Date: 20070827
  Transmission Date: 20080115
  Serious: Yes (Other)
  Sender: FDA-Public Use
  Company Number: None

PATIENT
  Age: 57 Year
  Sex: Female
  Weight: 26.8983 kg

DRUGS (1)
  1. ROSIGLITAZONE [Suspect]
     Indication: TYPE 2 DIABETES MELLITUS
     Dosage: 4 MG ONCE DAILY PO
     Route: 048
     Dates: start: 20070809, end: 20070820

REACTIONS (2)
  - OEDEMA PERIPHERAL [None]
  - PERICARDIAL EFFUSION [None]
